FAERS Safety Report 7429742-0 (Version None)
Quarter: 2011Q2

REPORT INFORMATION
  Report Type: 
  Country: None (occurrence: None)
  Receive Date: 20110414
  Receipt Date: 20110404
  Transmission Date: 20111010
  Serious: Yes (Hospitalization)
  Sender: FDA-Public Use
  Company Number: UTC-006122

PATIENT
  Age: 65 Year
  Sex: Female
  Weight: 57.2 kg

DRUGS (4)
  1. DIURETICS (DIURETICS) [Concomitant]
  2. REMODULIN [Suspect]
     Indication: SCLERODERMA
     Dosage: 86.4 UG/KG (0.06 UG/KG,1 IN 1 MIN),INTRAVENOUS
     Route: 042
     Dates: start: 20091201
  3. REMODULIN [Suspect]
     Indication: PULMONARY ARTERIAL HYPERTENSION
     Dosage: 86.4 UG/KG (0.06 UG/KG,1 IN 1 MIN),INTRAVENOUS
     Route: 042
     Dates: start: 20091201
  4. REVATIO [Concomitant]

REACTIONS (1)
  - RECTAL HAEMORRHAGE [None]
